FAERS Safety Report 8585506-6 (Version None)
Quarter: 2012Q3

REPORT INFORMATION
  Report Type: 
  Country: None (occurrence: None)
  Receive Date: 20120810
  Receipt Date: 20120802
  Transmission Date: 20120928
  Serious: Yes (Hospitalization)
  Sender: FDA-Public Use
  Company Number: US-BAYER-2012-030752

PATIENT
  Age: 52 Year
  Sex: Female
  Weight: 86.168 kg

DRUGS (52)
  1. DROSPIRENONE AND ETHINYL ESTRADIOL [Suspect]
     Indication: PREMENSTRUAL SYNDROME
  2. CIPROFLOXACIN [Concomitant]
     Dosage: UNK
     Dates: start: 20080101
  3. CIPROFLOXACIN [Concomitant]
     Dosage: UNK
     Dates: start: 20090101
  4. SULFAMETHOXAZOLE AND TRIMETHOPRIM [Concomitant]
     Dosage: UNK
     Dates: start: 20080101
  5. AMOXICILLIN [Concomitant]
     Dosage: UNK
     Dates: start: 20090101
  6. AMOXICILLIN [Concomitant]
     Dosage: UNK
     Dates: start: 20110101
  7. CIPROFLOXACIN [Concomitant]
     Dosage: UNK
     Dates: start: 20100101
  8. AZITHROMYCIN [Concomitant]
     Dosage: UNK
     Dates: start: 20100101
  9. SULFAMETHOXAZOLE AND TRIMETHOPRIM [Concomitant]
     Dosage: UNK
     Dates: start: 20060101
  10. CEPHALEXIN [Concomitant]
     Dosage: UNK
     Dates: start: 20060101
  11. CEPHALEXIN [Concomitant]
     Dosage: UNK
     Dates: start: 20110101
  12. AMOXICILLIN [Concomitant]
     Dosage: UNK
     Dates: start: 20060101
  13. METRONIDAZOLE [Concomitant]
     Dosage: UNK
     Dates: start: 20100101
  14. NITROFURANTOIN [Concomitant]
     Dosage: UNK
     Dates: start: 20090101
  15. DROSPIRENONE AND ETHINYL ESTRADIOL [Suspect]
     Indication: POLYCYSTIC OVARIES
  16. AZITHROMYCIN [Concomitant]
     Dosage: UNK
     Dates: start: 20080101
  17. SULFAMETHOXAZOLE AND TRIMETHOPRIM [Concomitant]
     Dosage: UNK
     Dates: start: 20110101
  18. CEPHALEXIN [Concomitant]
     Dosage: UNK
     Dates: start: 20100101
  19. METRONIDAZOLE [Concomitant]
     Dosage: UNK
     Dates: start: 20060101
  20. METRONIDAZOLE [Concomitant]
     Dosage: UNK
     Dates: start: 20080101
  21. YASMIN [Suspect]
     Indication: POLYCYSTIC OVARIES
     Dosage: UNK
     Dates: start: 20071201, end: 20080701
  22. DROSPIRENONE AND ETHINYL ESTRADIOL [Suspect]
     Indication: MENSTRUATION IRREGULAR
     Dosage: UNK
     Dates: start: 20080701, end: 20090701
  23. CIPROFLOXACIN [Concomitant]
     Dosage: UNK
     Dates: start: 20060101
  24. SULFAMETHOXAZOLE AND TRIMETHOPRIM [Concomitant]
     Dosage: UNK
     Dates: start: 20090101
  25. CEPHALEXIN [Concomitant]
     Dosage: UNK
     Dates: start: 20080101
  26. AMOXICILLIN [Concomitant]
     Dosage: UNK
     Dates: start: 20080101
  27. ASCORBIC ACID [Concomitant]
     Dosage: UNK
     Dates: start: 20100101
  28. DROSPIRENONE AND ETHINYL ESTRADIOL [Suspect]
     Indication: PREMENSTRUAL SYNDROME
  29. SYNTHROID [Concomitant]
     Indication: HYPOTHYROIDISM
     Dosage: 100 MCG/24HR, UNK
     Dates: start: 20060101
  30. AZITHROMYCIN [Concomitant]
     Dosage: UNK
     Dates: start: 20110101
  31. CEPHALEXIN [Concomitant]
     Dosage: UNK
     Dates: start: 20090101
  32. HYDROCHLOROTHIAZIDE [Concomitant]
     Dosage: UNK
     Dates: start: 20100101
  33. PHENAZOPYRIDINE HCL TAB [Concomitant]
     Dosage: 200 MG,TID
  34. DROSPIRENONE AND ETHINYL ESTRADIOL [Suspect]
     Indication: MENSTRUATION IRREGULAR
     Dosage: UNK
     Dates: start: 20101101, end: 20110501
  35. AZITHROMYCIN [Concomitant]
     Dosage: UNK
     Dates: start: 20060101
  36. AZITHROMYCIN [Concomitant]
     Dosage: UNK
     Dates: start: 20090101
  37. SULFAMETHOXAZOLE AND TRIMETHOPRIM [Concomitant]
     Dosage: UNK
     Dates: start: 20100101
  38. AMOXICILLIN [Concomitant]
     Dosage: UNK
     Dates: start: 20100101
  39. NITROFURANTOIN [Concomitant]
     Dosage: UNK
     Dates: start: 20080101
  40. NITROFURANTOIN [Concomitant]
     Dosage: UNK
     Dates: start: 20100101
  41. NITROFURANTOIN [Concomitant]
     Dosage: UNK
     Dates: start: 20110101
  42. ATORVASTATIN [Concomitant]
     Indication: BLOOD CHOLESTEROL INCREASED
     Dosage: UNK
     Dates: start: 20100101, end: 20110101
  43. THYROID TAB [Concomitant]
     Dosage: UNK
     Dates: start: 20060101
  44. YASMIN [Suspect]
     Indication: MENSTRUATION IRREGULAR
  45. DROSPIRENONE AND ETHINYL ESTRADIOL [Suspect]
     Indication: POLYCYSTIC OVARIES
  46. BLACK COHOSH [Concomitant]
  47. CIPROFLOXACIN [Concomitant]
     Dosage: UNK
     Dates: start: 20110101
  48. METRONIDAZOLE [Concomitant]
     Dosage: UNK
     Dates: start: 20090101
  49. METRONIDAZOLE [Concomitant]
     Dosage: UNK
     Dates: start: 20110101
  50. NITROFURANTOIN [Concomitant]
     Dosage: UNK
     Dates: start: 20060101
  51. YASMIN [Suspect]
     Indication: PREMENSTRUAL SYNDROME
  52. OMEPRAZOLE [Concomitant]
     Dosage: 20 MG, QD
     Route: 048

REACTIONS (9)
  - ANXIETY [None]
  - PULMONARY EMBOLISM [None]
  - INJURY [None]
  - GENERAL PHYSICAL HEALTH DETERIORATION [None]
  - EMOTIONAL DISTRESS [None]
  - DYSPNOEA [None]
  - PAIN [None]
  - BLOOD PRESSURE INCREASED [None]
  - ANHEDONIA [None]
